FAERS Safety Report 6903884-8 (Version None)
Quarter: 2010Q3

REPORT INFORMATION
  Report Type: 
  Country: None (occurrence: None)
  Receive Date: 20100804
  Receipt Date: 20090123
  Transmission Date: 20110219
  Serious: No
  Sender: FDA-Public Use
  Company Number: US-PFIZER INC-2008098479

PATIENT
  Sex: Male
  Weight: 102.7 kg

DRUGS (8)
  1. LYRICA [Suspect]
     Indication: PAIN
     Dosage: 75 MG, 2X/DAY
     Route: 048
     Dates: start: 20070601
  2. AMLODIPINE [Concomitant]
  3. FELODIPINE [Concomitant]
  4. POTASSIUM CHLORIDE [Concomitant]
  5. HYDROCHLOROTHIAZIDE [Concomitant]
  6. VITAMIN TAB [Concomitant]
  7. ASCORBIC ACID [Concomitant]
  8. LISINOPRIL [Concomitant]

REACTIONS (4)
  - BLOOD TEST ABNORMAL [None]
  - LIPIDS ABNORMAL [None]
  - WAIST CIRCUMFERENCE INCREASED [None]
  - WEIGHT INCREASED [None]
